FAERS Safety Report 9268699 (Version 1)
Quarter: 2013Q2

REPORT INFORMATION
  Report Type: Report from Study
  Country: US (occurrence: US)
  Receive Date: 20130502
  Receipt Date: 20130502
  Transmission Date: 20140414
  Serious: Yes (Hospitalization, Other)
  Sender: FDA-Public Use
  Company Number: US-ALEXION-A201300184

PATIENT
  Sex: 0

DRUGS (7)
  1. SOLIRIS [Suspect]
     Indication: PAROXYSMAL NOCTURNAL HAEMOGLOBINURIA
     Dosage: 600 MG, QW X 4
     Route: 042
     Dates: start: 20121213
  2. FISH OIL [Concomitant]
     Dosage: 1000 IU, QD
     Route: 048
  3. AMARYL [Concomitant]
     Indication: DIABETES MELLITUS
     Dosage: 4 MG, QD
     Route: 048
  4. LANTUS [Concomitant]
     Indication: DIABETES MELLITUS
     Dosage: 400 IU, QD
     Route: 058
  5. METFORMIN [Concomitant]
     Dosage: 1000 MG, BID
     Route: 048
  6. MULTIVITAMIN [Concomitant]
     Dosage: UNK, QD
  7. CARDIZEM [Concomitant]
     Indication: HYPERTENSION
     Dosage: 240 MG, BID
     Route: 048

REACTIONS (2)
  - Aplastic anaemia [Not Recovered/Not Resolved]
  - Transfusion [Unknown]
